FAERS Safety Report 8144261-4 (Version None)
Quarter: 2012Q1

REPORT INFORMATION
  Report Type: 
  Country: None (occurrence: None)
  Receive Date: 20120217
  Receipt Date: 20120208
  Transmission Date: 20120608
  Serious: Yes (Other)
  Sender: FDA-Public Use
  Company Number: IN-ABBOTT-12P-078-0902993-00

PATIENT
  Age: 25 Year
  Sex: Female

DRUGS (3)
  1. COMBIVIR [Concomitant]
     Indication: HIV INFECTION
     Route: 048
  2. KALETRA [Suspect]
     Indication: HIV INFECTION
     Route: 048
     Dates: start: 20120111
  3. REYATAZ [Concomitant]
     Indication: HIV INFECTION
     Route: 048
     Dates: end: 20120111

REACTIONS (1)
  - ABORTION SPONTANEOUS [None]
